FAERS Safety Report 5474033-0 (Version None)
Quarter: 2007Q4

REPORT INFORMATION
  Report Type: 
  Country: None (occurrence: None)
  Receive Date: 20071002
  Receipt Date: 20070920
  Transmission Date: 20080405
  Serious: Yes (Hospitalization, Other)
  Sender: FDA-Public Use
  Company Number: PHBS2007NL15660

PATIENT
  Age: 63 Year
  Sex: Male

DRUGS (7)
  1. SANDOSTATIN LAR [Suspect]
     Dosage: 30 MG, QMO
     Dates: start: 19980101
  2. XATRAL [Concomitant]
     Dates: start: 20060101, end: 20070501
  3. OMNIC [Concomitant]
     Dates: start: 20070501, end: 20070814
  4. PLAVIX [Suspect]
     Dosage: 75 MG, QD
     Dates: start: 20070910
  5. AVODART [Suspect]
     Dosage: 0.5 MG, QD
     Dates: start: 20070914
  6. CRESTOR [Suspect]
     Dosage: 5 MG, QD
     Dates: start: 20070914
  7. CIPROFLOXACIN [Concomitant]
     Indication: URINARY TRACT INFECTION

REACTIONS (8)
  - AMNESIA [None]
  - DRUG INTERACTION [None]
  - FALL [None]
  - LOSS OF CONSCIOUSNESS [None]
  - PROSTATIC DISORDER [None]
  - PYREXIA [None]
  - STENT PLACEMENT [None]
  - URINARY TRACT INFECTION [None]
